FAERS Safety Report 5641730-3 (Version None)
Quarter: 2008Q1

REPORT INFORMATION
  Report Type: 
  Country: None (occurrence: None)
  Receive Date: 20080131
  Receipt Date: 20071031
  Transmission Date: 20080703
  Serious: Yes (Other)
  Sender: FDA-Public Use
  Company Number: 163-21880-07110110

PATIENT
  Age: 75 Year
  Sex: Female

DRUGS (11)
  1. REVLIMID [Suspect]
     Indication: MULTIPLE MYELOMA
     Dosage: X21 DAYS EVERY 28 DAYS, ORAL
     Route: 048
     Dates: start: 20070215, end: 20070411
  2. REVLIMID [Suspect]
     Dosage: X21 DAYS EVERY 28 DAYS, ORAL
     Route: 048
     Dates: start: 20070412, end: 20070704
  3. REVLIMID [Suspect]
     Dosage: X21 DAYS EVERY 28 DAYS, ORAL ; 5MG ALT. W/ 10MG EVERY OTHER DAY, ORAL ; X21 DAYS EVERY 28 DAYS, ORAL
     Route: 048
     Dates: start: 20070705, end: 20070829
  4. REVLIMID [Suspect]
     Dosage: X21 DAYS EVERY 28 DAYS, ORAL ; 5MG ALT. W/ 10MG EVERY OTHER DAY, ORAL ; X21 DAYS EVERY 28 DAYS, ORAL
     Route: 048
     Dates: start: 20070830, end: 20070925
  5. REVLIMID [Suspect]
     Dosage: X21 DAYS EVERY 28 DAYS, ORAL ; 5MG ALT. W/ 10MG EVERY OTHER DAY, ORAL ; X21 DAYS EVERY 28 DAYS, ORAL
     Route: 048
     Dates: start: 20070926
  6. VICODIN [Concomitant]
  7. COZAAR [Concomitant]
  8. HYDROCHLOROTHIAZIDE [Concomitant]
  9. FLUOXETINE [Concomitant]
  10. ZOMETA [Concomitant]
  11. PROCRIT [Concomitant]

REACTIONS (3)
  - ANAEMIA [None]
  - LEUKOPENIA [None]
  - PLATELET COUNT DECREASED [None]
